FAERS Safety Report 4538898-9 (Version None)
Quarter: 2004Q4

REPORT INFORMATION
  Report Type: 
  Country: None (occurrence: None)
  Receive Date: 20041227
  Receipt Date: 20041208
  Transmission Date: 20050328
  Serious: Yes (Disabling)
  Sender: FDA-Public Use
  Company Number: GB-ABBOTT-04P-167-0282736-00

PATIENT
  Sex: Female

DRUGS (3)
  1. EPILIM CHRONO TABLETS [Suspect]
     Indication: AFFECTIVE DISORDER
     Dosage: DAILY DOSE BETWEEN 800 MG TO
     Route: 048
     Dates: start: 19980101
  2. EPILIM CHRONO TABLETS [Suspect]
     Indication: BRIEF PSYCHOTIC DISORDER, WITH POSTPARTUM ONSET
     Route: 065
  3. EPILIM CHRONO TABLETS [Suspect]
     Route: 065

REACTIONS (5)
  - ASTHENIA [None]
  - FALL [None]
  - GRIP STRENGTH DECREASED [None]
  - PAIN [None]
  - SKIN INFLAMMATION [None]
